FAERS Safety Report 7285171-4 (Version None)
Quarter: 2011Q1

REPORT INFORMATION
  Report Type: 
  Country: None (occurrence: None)
  Receive Date: 20110204
  Receipt Date: 20110204
  Transmission Date: 20110831
  Serious: No
  Sender: FDA-Public Use
  Company Number: None

PATIENT
  Sex: Male
  Weight: 54.4316 kg

DRUGS (1)
  1. ENDOCET 5-325 TABLET [Suspect]
     Indication: NEURALGIA
     Dosage: 1 TABLET 4X DAILY 047
     Route: 048

REACTIONS (1)
  - DRUG SCREEN POSITIVE [None]
